FAERS Safety Report 9858737 (Version 4)
Quarter: 2014Q2

REPORT INFORMATION
  Report Type: Spontaneous
  Country: US (occurrence: US)
  Receive Date: 20140131
  Receipt Date: 20140403
  Transmission Date: 20141212
  Serious: Yes (Other)
  Sender: FDA-Public Use
  Company Number: US-PFIZER INC-2014027318

PATIENT
  Age: 78 Year
  Sex: Female
  Weight: 81.63 kg

DRUGS (4)
  1. PREMARIN [Suspect]
     Indication: MENOPAUSAL SYMPTOMS
     Dosage: 0.625 MG, 1X/DAY
     Route: 048
     Dates: start: 1971, end: 2013
  2. PREMARIN [Suspect]
     Dosage: 0.625 MG, 1X/DAY
     Route: 048
     Dates: start: 2013
  3. SIMVASTATIN [Concomitant]
     Indication: BLOOD CHOLESTEROL INCREASED
     Dosage: 20 MG, UNK
  4. MECLIZINE [Concomitant]
     Indication: VERTIGO
     Dosage: UNK, AS NEEDED

REACTIONS (4)
  - Hypertension [Unknown]
  - Insomnia [Recovered/Resolved]
  - Night sweats [Recovered/Resolved]
  - Irritability [Recovered/Resolved]
